APPROVED DRUG PRODUCT: ZOLPIDEM TARTRATE
Active Ingredient: ZOLPIDEM TARTRATE
Strength: 3.5MG
Dosage Form/Route: TABLET;SUBLINGUAL
Application: A204503 | Product #002 | TE Code: AB
Applicant: DR REDDYS LABORATORIES INC
Approved: Nov 18, 2016 | RLD: No | RS: No | Type: RX